FAERS Safety Report 8872164 (Version 4)
Quarter: 2013Q1

REPORT INFORMATION
  Report Type: Spontaneous
  Country: US (occurrence: US)
  Receive Date: 20121030
  Receipt Date: 20130123
  Transmission Date: 20140127
  Serious: Yes (Other)
  Sender: FDA-Public Use
  Company Number: US-ELI_LILLY_AND_COMPANY-US201210005831

PATIENT
  Age: 77 Year
  Sex: Female

DRUGS (8)
  1. FORTEO [Suspect]
     Indication: OSTEOPOROSIS
     Dosage: 20 UG, QD
     Dates: start: 201209
  2. FORTEO [Suspect]
     Dosage: 20 UG, QD
  3. URSODIOL [Concomitant]
  4. VITESOL E [Concomitant]
  5. MULTIVITAMIN [Concomitant]
  6. D3 [Concomitant]
  7. CALCIUM [Concomitant]
  8. ACTIGALL [Concomitant]
     Indication: BILIARY CIRRHOSIS PRIMARY

REACTIONS (6)
  - Syncope [Recovered/Resolved]
  - Fall [Unknown]
  - Peripheral coldness [Unknown]
  - Pallor [Unknown]
  - Paraesthesia [Unknown]
  - Pain in extremity [Unknown]
